FAERS Safety Report 21816224 (Version 1)
Quarter: 2023Q1

REPORT INFORMATION
  Report Type: Spontaneous
  Country: US (occurrence: None)
  Receive Date: 20230103
  Receipt Date: 20230103
  Transmission Date: 20230417
  Serious: No
  Sender: FDA-Public Use
  Company Number: None

PATIENT
  Sex: Female
  Weight: 75.3 kg

DRUGS (17)
  1. VERZENIO [Suspect]
     Active Substance: ABEMACICLIB
     Indication: Breast cancer female
     Dosage: FREQUENCY : TWICE A DAY;?
     Route: 048
     Dates: start: 202210
  2. AMBIEN [Suspect]
     Active Substance: ZOLPIDEM TARTRATE
  3. ASPIRIN [Concomitant]
     Active Substance: ASPIRIN
  4. CHLORTHALIDONE [Concomitant]
     Active Substance: CHLORTHALIDONE
  5. Citalopram, [Concomitant]
  6. CYCLOBENZAPRINE [Concomitant]
     Active Substance: CYCLOBENZAPRINE
  7. DOCUSATE [Concomitant]
     Active Substance: DOCUSATE
  8. GABAPENTIN [Concomitant]
     Active Substance: GABAPENTIN
  9. GLYBURIDE [Concomitant]
     Active Substance: GLYBURIDE
  10. HYDROCODONE [Concomitant]
     Active Substance: HYDROCODONE
  11. LETROZOLE [Concomitant]
     Active Substance: LETROZOLE
  12. LEVEMIR [Concomitant]
     Active Substance: INSULIN DETEMIR
  13. MELOXICAM [Concomitant]
     Active Substance: MELOXICAM
  14. RYBELSUS [Concomitant]
     Active Substance: SEMAGLUTIDE
  15. TYLENOL WITH CODEINE [Concomitant]
     Active Substance: ACETAMINOPHEN\CODEINE PHOSPHATE
  16. VITAMIN C [Concomitant]
     Active Substance: ASCORBIC ACID
  17. VITAMIN D3 [Concomitant]
     Active Substance: CHOLECALCIFEROL

REACTIONS (4)
  - Liver function test increased [None]
  - Renal function test abnormal [None]
  - Full blood count decreased [None]
  - Dyspnoea [None]
